FAERS Safety Report 4976104-1 (Version None)
Quarter: 2006Q2

REPORT INFORMATION
  Report Type: 
  Country: None (occurrence: None)
  Receive Date: 20060411
  Receipt Date: 20060323
  Transmission Date: 20061013
  Serious: Yes (Hospitalization)
  Sender: FDA-Public Use
  Company Number: USA0509108378

PATIENT
  Age: 51 Year
  Sex: Male

DRUGS (2)
  1. HUMULIN L [Suspect]
     Dosage: SEE IMAGE
     Dates: start: 19950101
  2. HUMULIN L [Suspect]

REACTIONS (5)
  - BLOOD GLUCOSE INCREASED [None]
  - DIFFICULTY IN WALKING [None]
  - DRUG INEFFECTIVE [None]
  - LOWER LIMB FRACTURE [None]
  - PHARMACEUTICAL PRODUCT COMPLAINT [None]
